FAERS Safety Report 5663790-6 (Version None)
Quarter: 2008Q1

REPORT INFORMATION
  Report Type: 
  Country: None (occurrence: None)
  Receive Date: 20080314
  Receipt Date: 20080303
  Transmission Date: 20080703
  Serious: Yes (Hospitalization)
  Sender: FDA-Public Use
  Company Number: GB-RANBAXY-2008RR-13483

PATIENT

DRUGS (4)
  1. IBUPROFEN TABLETS BP 400MG [Suspect]
     Indication: BACK PAIN
     Dosage: 400 MG, UNK
     Route: 048
     Dates: end: 20080212
  2. FENTANYL [Concomitant]
     Dosage: 50 UG, UNK
     Route: 061
  3. ACETAMINOPHEN [Concomitant]
  4. TRAMADOL HYDROCHLORIDE CAPSULES 50MG [Concomitant]

REACTIONS (1)
  - HAEMATOCHEZIA [None]
